FAERS Safety Report 18177002 (Version 2)
Quarter: 2020Q4

REPORT INFORMATION
  Report Type: Spontaneous
  Country: US (occurrence: US)
  Receive Date: 20200820
  Receipt Date: 20201125
  Transmission Date: 20210113
  Serious: No
  Sender: FDA-Public Use
  Company Number: US-PFIZER INC-2020322900

PATIENT
  Age: 59 Year
  Sex: Female

DRUGS (2)
  1. IBRANCE [Suspect]
     Active Substance: PALBOCICLIB
     Dosage: 100 MG, CYCLIC
     Dates: start: 20201121
  2. IBRANCE [Suspect]
     Active Substance: PALBOCICLIB
     Dosage: UNK(100 MG)
     Dates: start: 20200817

REACTIONS (2)
  - Fatigue [Unknown]
  - Product dose omission issue [Unknown]
